FAERS Safety Report 9934698 (Version 2)
Quarter: 2014Q1

REPORT INFORMATION
  Report Type: Report from Study
  Country: US (occurrence: US)
  Receive Date: 20140228
  Receipt Date: 20140305
  Transmission Date: 20141002
  Serious: Yes (Other)
  Sender: FDA-Public Use
  Company Number: US-ACTELION-A-US2014-95558

PATIENT
  Age: 56 Year
  Sex: Female

DRUGS (4)
  1. VENTAVIS [Suspect]
     Indication: PULMONARY ARTERIAL HYPERTENSION
     Dosage: 5 MCG, 6-9X DAY
     Route: 055
     Dates: start: 20110906
  2. SILDENAFIL [Concomitant]
  3. LETAIRIS [Concomitant]
  4. COUMADIN [Concomitant]

REACTIONS (1)
  - Hypertension [Recovering/Resolving]
